FAERS Safety Report 13286473 (Version 4)
Quarter: 2017Q1

REPORT INFORMATION
  Report Type: Spontaneous
  Country: JP (occurrence: JP)
  Receive Date: 20170301
  Receipt Date: 20170320
  Transmission Date: 20170428
  Serious: Yes (Other)
  Sender: FDA-Public Use
  Company Number: JP-LUNDBECK-DKLU2027134

PATIENT
  Age: 34 Year
  Sex: Male

DRUGS (6)
  1. VALPROATE SODIUM. [Interacting]
     Active Substance: VALPROATE SODIUM
     Indication: SEVERE MYOCLONIC EPILEPSY OF INFANCY
     Route: 048
  2. MYSTAN [Interacting]
     Active Substance: CLOBAZAM
     Indication: MYOCLONIC EPILEPSY
  3. DIACOMIT [Interacting]
     Active Substance: STIRIPENTOL
     Indication: SEVERE MYOCLONIC EPILEPSY OF INFANCY
     Route: 065
  4. TOPIRAMATE. [Interacting]
     Active Substance: TOPIRAMATE
     Indication: SEVERE MYOCLONIC EPILEPSY OF INFANCY
     Route: 065
  5. MYSTAN [Suspect]
     Active Substance: CLOBAZAM
     Indication: SEVERE MYOCLONIC EPILEPSY OF INFANCY
     Route: 065
  6. VALPROATE SODIUM. [Interacting]
     Active Substance: VALPROATE SODIUM
     Indication: SEVERE MYOCLONIC EPILEPSY OF INFANCY

REACTIONS (4)
  - Somnolence [Recovered/Resolved]
  - Decreased appetite [Recovered/Resolved]
  - Anticonvulsant drug level increased [Recovered/Resolved]
  - Thrombocytopenia [Recovered/Resolved]
